FAERS Safety Report 5520102-6 (Version None)
Quarter: 2007Q4

REPORT INFORMATION
  Report Type: 
  Country: None (occurrence: None)
  Receive Date: 20071116
  Receipt Date: 20071107
  Transmission Date: 20080405
  Serious: Yes (Other)
  Sender: FDA-Public Use
  Company Number: US-SHR-US-2007-008317

PATIENT
  Age: 62 Year
  Sex: Female

DRUGS (3)
  1. BETASERON [Suspect]
     Indication: RELAPSING-REMITTING MULTIPLE SCLEROSIS
     Dosage: 8 MIU, EVERY 2D
     Route: 058
     Dates: start: 20050831
  2. ALLEGRA [Concomitant]
     Indication: MULTIPLE ALLERGIES
  3. CELEXA [Concomitant]
     Indication: DEPRESSION

REACTIONS (4)
  - BRONCHITIS [None]
  - EYE DISORDER [None]
  - HEPATOMEGALY [None]
  - WEIGHT INCREASED [None]
